FAERS Safety Report 24422099 (Version 5)
Quarter: 2025Q3

REPORT INFORMATION
  Report Type: Report from Study
  Country: US (occurrence: US)
  Receive Date: 20241010
  Receipt Date: 20250810
  Transmission Date: 20251020
  Serious: Yes (Other)
  Sender: ALEXION PHARMACEUTICALS
  Company Number: US-AstraZeneca-CH-00715556A

PATIENT
  Age: 51 Year
  Sex: Male
  Weight: 89.796 kg

DRUGS (1)
  1. DAPAGLIFLOZIN [Suspect]
     Active Substance: DAPAGLIFLOZIN
     Indication: Diabetes mellitus
     Route: 065

REACTIONS (3)
  - Thrombotic thrombocytopenic purpura [Unknown]
  - Renal disorder [Not Recovered/Not Resolved]
  - Blood creatinine [Unknown]

NARRATIVE: CASE EVENT DATE: 20120501
